FAERS Safety Report 14449507 (Version 1)
Quarter: 2018Q1

REPORT INFORMATION
  Report Type: Spontaneous
  Country: US (occurrence: US)
  Receive Date: 20180126
  Receipt Date: 20180126
  Transmission Date: 20180509
  Serious: Yes (Other)
  Sender: FDA-Public Use
  Company Number: None

PATIENT
  Age: 81 Year
  Sex: Male
  Weight: 87.09 kg

DRUGS (1)
  1. RESTASIS [Suspect]
     Active Substance: CYCLOSPORINE
     Indication: DRY EYE
     Dosage: ?          QUANTITY:LAYMAN? 1;?
     Route: 047
     Dates: start: 201711, end: 201801

REACTIONS (2)
  - Device issue [None]
  - Device difficult to use [None]

NARRATIVE: CASE EVENT DATE: 20171118
